FAERS Safety Report 9176743 (Version 1)
Quarter: 2013Q1

REPORT INFORMATION
  Report Type: Spontaneous
  Country: US (occurrence: None)
  Receive Date: 20130320
  Receipt Date: 20130320
  Transmission Date: 20140127
  Serious: Yes (Death, Hospitalization)
  Sender: FDA-Public Use
  Company Number: None

PATIENT
  Age: 63 Year
  Sex: Male
  Weight: 93.8 kg

DRUGS (5)
  1. ACTIVASE [Suspect]
     Indication: MESENTERIC VEIN THROMBOSIS
     Route: 041
     Dates: start: 20130211, end: 20130214
  2. HEPARIN IV DRIP [Concomitant]
  3. CEFAZOLIN [Concomitant]
  4. DORIPENEM [Concomitant]
  5. INSULIN ASPART [Concomitant]

REACTIONS (2)
  - Cerebral haemorrhage [None]
  - Intracranial pressure increased [None]
